FAERS Safety Report 9192022 (Version 1)
Quarter: 2013Q1

REPORT INFORMATION
  Report Type: Spontaneous
  Country: US (occurrence: None)
  Receive Date: 20130325
  Receipt Date: 20130325
  Transmission Date: 20140127
  Serious: Yes (Death, Other)
  Sender: FDA-Public Use
  Company Number: TPA2013A02260

PATIENT
  Age: 69 Year
  Sex: Male

DRUGS (3)
  1. ACTOS (PIOGLITAZONE HYDROCHLORIDE) [Suspect]
     Indication: TYPE 2 DIABETES MELLITUS
     Dates: start: 20031228, end: 20091003
  2. GLUCOPHAGE (METFORMIN HYDROCHLORIDE) [Concomitant]
  3. JANUVIA (SITAGLIPTIN PHOSPHATE) [Concomitant]

REACTIONS (1)
  - Bladder cancer [None]
